FAERS Safety Report 6870071-1 (Version None)
Quarter: 2010Q3

REPORT INFORMATION
  Report Type: 
  Country: None (occurrence: None)
  Receive Date: 20100722
  Receipt Date: 20100714
  Transmission Date: 20110219
  Serious: Yes (Other)
  Sender: FDA-Public Use
  Company Number: JP-PFIZER INC-2010076130

PATIENT
  Age: 82 Year
  Sex: Female
  Weight: 67 kg

DRUGS (7)
  1. NORVASC [Suspect]
     Indication: HYPERTENSION
     Dosage: 5 MG, 1X/DAY
     Route: 048
     Dates: start: 20070101
  2. ASPIRIN [Suspect]
     Dosage: 100 MG, 1X/DAY
     Route: 048
     Dates: start: 20080101
  3. VITAMIN E [Concomitant]
  4. ADJUST-A [Concomitant]
     Dosage: UNK
     Route: 048
     Dates: start: 20040101
  5. MARZULENE [Concomitant]
     Dosage: 0.5 G, 3X/DAY
     Route: 048
     Dates: start: 20040101
  6. NICHI E-NATE [Concomitant]
     Dosage: 100 MG, 3X/DAY
     Route: 048
     Dates: start: 20040101
  7. VEMAS S [Concomitant]
     Dosage: UNK
     Route: 048
     Dates: start: 20040101

REACTIONS (1)
  - ANOSMIA [None]
